FAERS Safety Report 14301225 (Version 3)
Quarter: 2018Q1

REPORT INFORMATION
  Report Type: Spontaneous
  Country: US (occurrence: US)
  Receive Date: 20171219
  Receipt Date: 20180205
  Transmission Date: 20180509
  Serious: Yes (Other)
  Sender: FDA-Public Use
  Company Number: US-VIFOR (INTERNATIONAL) INC.-VIT-2017-13884

PATIENT
  Age: 33 Year
  Sex: Male
  Weight: 87 kg

DRUGS (16)
  1. LANTUS [Concomitant]
     Active Substance: INSULIN GLARGINE
     Indication: TYPE 1 DIABETES MELLITUS
     Route: 058
     Dates: start: 20170526
  2. ATORVASTATIN CALCIUM. [Concomitant]
     Active Substance: ATORVASTATIN CALCIUM
     Route: 048
     Dates: start: 20160926
  3. ZEMPLAR [Concomitant]
     Active Substance: PARICALCITOL
     Indication: BLOOD PARATHYROID HORMONE INCREASED
     Route: 042
     Dates: start: 20171201
  4. VENOFER [Suspect]
     Active Substance: IRON SUCROSE
     Indication: PRODUCT USED FOR UNKNOWN INDICATION
     Route: 040
     Dates: start: 20160926
  5. METOPROLOL. [Concomitant]
     Active Substance: METOPROLOL
     Indication: HYPERTENSION
     Route: 048
     Dates: start: 20171103
  6. NOVOLOG [Concomitant]
     Active Substance: INSULIN ASPART
     Indication: TYPE 1 DIABETES MELLITUS
     Dosage: 70/30
     Route: 058
     Dates: start: 20170526
  7. RENVELA [Concomitant]
     Active Substance: SEVELAMER CARBONATE
     Route: 048
     Dates: start: 20161122
  8. EFFIENT [Concomitant]
     Active Substance: PRASUGREL HYDROCHLORIDE
     Indication: ANTICOAGULANT THERAPY
     Route: 048
     Dates: start: 20170118
  9. HYDRALAZINE [Concomitant]
     Active Substance: HYDRALAZINE HYDROCHLORIDE
     Indication: HYPERTENSION
     Route: 048
     Dates: start: 20170526
  10. METOCLOPRAMIDE. [Concomitant]
     Active Substance: METOCLOPRAMIDE
     Indication: NAUSEA
     Route: 048
     Dates: start: 20160926
  11. MIRCERA [Suspect]
     Active Substance: METHOXY POLYETHYLENE GLYCOL-EPOETIN BETA
     Indication: ANAEMIA
     Route: 040
     Dates: start: 20171113, end: 20171113
  12. MIRCERA [Suspect]
     Active Substance: METHOXY POLYETHYLENE GLYCOL-EPOETIN BETA
     Route: 040
     Dates: start: 20171127, end: 20171127
  13. NEPHRO VITE RX [Concomitant]
     Active Substance: ASCORBIC ACID\BIOTIN\CALCIUM PANTOTHENATE\CYANOCOBALAMIN\FOLIC ACID\NIACINAMIDE\PYRIDOXINE HYDROCHLORIDE\RIBOFLAVIN\THIAMINE MONONITRATE
     Route: 048
     Dates: start: 20160926
  14. OMEPRAZOLE. [Concomitant]
     Active Substance: OMEPRAZOLE
     Indication: GASTROOESOPHAGEAL REFLUX DISEASE
     Route: 048
     Dates: start: 20160926
  15. ARANESP [Concomitant]
     Active Substance: DARBEPOETIN ALFA
     Route: 040
     Dates: start: 20171222
  16. AURYXIA [Concomitant]
     Active Substance: TETRAFERRIC TRICITRATE DECAHYDRATE
     Route: 048
     Dates: start: 20171103

REACTIONS (11)
  - Blood pressure decreased [Recovered/Resolved]
  - Moaning [Recovered/Resolved]
  - Feeling hot [Recovered/Resolved]
  - Anaphylactic reaction [Recovered/Resolved]
  - Flushing [Recovered/Resolved]
  - Speech disorder [Recovered/Resolved]
  - Vomiting [Recovered/Resolved]
  - Unresponsive to stimuli [Recovered/Resolved]
  - Vision blurred [Recovered/Resolved]
  - Hyperhidrosis [Recovered/Resolved]
  - Seizure [Recovered/Resolved]

NARRATIVE: CASE EVENT DATE: 20171127
